FAERS Safety Report 19176751 (Version 1)
Quarter: 2021Q2

REPORT INFORMATION
  Report Type: Spontaneous
  Country: US (occurrence: US)
  Receive Date: 20210424
  Receipt Date: 20210424
  Transmission Date: 20210717
  Serious: No
  Sender: FDA-Public Use
  Company Number: US-UNITED THERAPEUTICS-UNT-2021-006862

PATIENT
  Age: 81 Year
  Sex: Male
  Weight: 73.47 kg

DRUGS (4)
  1. TYVASO [Suspect]
     Active Substance: TREPROSTINIL
     Indication: PULMONARY ARTERIAL HYPERTENSION
     Dosage: UNK
     Dates: start: 20190507
  2. TYVASO [Suspect]
     Active Substance: TREPROSTINIL
     Dosage: 1 AMPULE OF TYVASO MIXED WITH 1 AMPULE OF ALBUTEROL PER TREATMENT, QID
     Dates: start: 20210409
  3. ALBUTEROL. [Concomitant]
     Active Substance: ALBUTEROL
     Indication: PRODUCT USED FOR UNKNOWN INDICATION
     Dosage: 1 AMPULE OF TYVASO MIXED WITH 1 AMPULE OF ALBUTEROL PER TREATMENT, QID
  4. TYVASO [Suspect]
     Active Substance: TREPROSTINIL
     Dosage: 18?54 ?G, QID

REACTIONS (9)
  - Fatigue [Unknown]
  - Wrong technique in product usage process [Unknown]
  - Epistaxis [Unknown]
  - Oxygen saturation decreased [Unknown]
  - Nausea [Unknown]
  - Malaise [Unknown]
  - Confusional state [Unknown]
  - Mental status changes [Unknown]
  - Poor quality product administered [Unknown]

NARRATIVE: CASE EVENT DATE: 20210409
